FAERS Safety Report 8251998-5 (Version None)
Quarter: 2012Q2

REPORT INFORMATION
  Report Type: 
  Country: None (occurrence: None)
  Receive Date: 20120402
  Receipt Date: 20120328
  Transmission Date: 20120825
  Serious: Yes (Hospitalization)
  Sender: FDA-Public Use
  Company Number: US-AMGEN-USACT2012002638

PATIENT
  Age: 29 Year
  Sex: Female
  Weight: 70 kg

DRUGS (41)
  1. BLINDED DENOSUMAB [Suspect]
     Indication: BREAST CANCER
     Dates: start: 20110815
  2. FOLIC ACID [Concomitant]
     Dosage: 1 MG, UNK
     Route: 048
     Dates: start: 20110809
  3. CHERATUSSIN AC [Concomitant]
     Dosage: UNK
     Route: 048
     Dates: start: 20111107, end: 20111205
  4. VITAMIN D [Concomitant]
     Dosage: 400 IU, UNK
     Route: 048
     Dates: start: 20110815
  5. SENOKOT [Concomitant]
     Dosage: UNK UNK, QD
     Route: 048
  6. TAXOTERE [Concomitant]
     Dosage: UNK
     Dates: start: 20110725
  7. ZOFRAN [Concomitant]
     Dosage: 4 MG, PRN
     Route: 048
     Dates: start: 20110809, end: 20111125
  8. FOSAPREPITANT DIMEGLUMINE [Concomitant]
     Dosage: 150 MG, UNK
     Route: 042
     Dates: start: 20110725, end: 20110926
  9. XANAX [Concomitant]
     Dosage: 1 MG, QD
     Route: 048
     Dates: start: 20110623
  10. TORADOL [Concomitant]
     Dosage: 30 MG, UNK
     Route: 042
     Dates: start: 20111125
  11. LORAZEPAM [Concomitant]
     Dosage: 0.5 MG, UNK
     Route: 042
     Dates: start: 20110725, end: 20110917
  12. SODIUM CHLORIDE [Concomitant]
     Dosage: 1000 ML, UNK
     Route: 042
     Dates: start: 20110912, end: 20111125
  13. FILGRASTIM [Concomitant]
     Dosage: 600 MUG, UNK
     Route: 058
     Dates: start: 20111107, end: 20111107
  14. LORTAB [Concomitant]
     Dosage: 7.5 MG, UNK
     Route: 048
     Dates: start: 20110809
  15. BLINDED DENOSUMAB [Suspect]
     Route: 058
     Dates: start: 20110815, end: 20111107
  16. COMPAZINE [Concomitant]
     Dosage: 10 MG, PRN
     Route: 048
     Dates: start: 20110722
  17. DULCOLAX [Concomitant]
     Route: 048
     Dates: start: 20110615
  18. VITAMIN B COMPLEX CAP [Concomitant]
     Dosage: UNK
     Route: 048
  19. NAPROXEN (ALEVE) [Concomitant]
     Dosage: 1 MG, UNK
     Route: 048
     Dates: start: 20110707
  20. KEFLEX [Concomitant]
     Dosage: 500 MG, UNK
     Route: 048
     Dates: start: 20111026, end: 20111101
  21. ZANTAC [Concomitant]
     Dosage: 150 MG, UNK
     Route: 048
     Dates: start: 20110812, end: 20110912
  22. FLUZONE [Concomitant]
     Dosage: 0.5 MG, UNK
     Route: 030
     Dates: start: 20110927, end: 20110927
  23. MIRALAX [Concomitant]
     Dosage: UNK UNK, PRN
     Route: 048
  24. NEULASTA [Suspect]
     Dosage: 6 MG, UNK
     Route: 058
     Dates: start: 20110726, end: 20111121
  25. EMLA [Concomitant]
     Dosage: 2.5 UNK, UNK
     Route: 062
     Dates: start: 20110725
  26. PHENERGAN HCL [Concomitant]
     Dosage: 25 MG, UNK
     Route: 054
     Dates: start: 20111108
  27. COUMADIN [Concomitant]
     Dosage: 1 MG, QD
     Route: 048
     Dates: start: 20110822
  28. EFFEXOR XR [Concomitant]
     Dosage: 37.5 MG, UNK
     Route: 048
     Dates: start: 20111118, end: 20120103
  29. IBUPROFEN [Concomitant]
     Dosage: 600 MG, UNK
     Route: 048
     Dates: start: 20110906, end: 20111010
  30. DILAUDID [Concomitant]
     Dosage: 2 MG, UNK
     Route: 042
     Dates: start: 20111125
  31. PALONOSETRON [Concomitant]
     Dosage: 0.25 MG, UNK
     Route: 042
     Dates: start: 20110725, end: 20120103
  32. CALCIUM CARBONATE [Concomitant]
     Dosage: 500 MG, UNK
     Route: 048
     Dates: start: 20110815
  33. CELEXA [Concomitant]
     Dosage: 40 MG, UNK
     Route: 048
     Dates: start: 20110623, end: 20111118
  34. BLINDED PLACEBO [Suspect]
     Indication: BREAST CANCER
     Dates: start: 20110815
  35. BLINDED PLACEBO [Suspect]
     Route: 058
     Dates: start: 20110815, end: 20111107
  36. MORPHINE SULFATE [Concomitant]
     Dosage: 4 MG, UNK
     Route: 042
     Dates: start: 20110909, end: 20111125
  37. AMBIEN [Concomitant]
     Dosage: 10 MG, PRN
     Route: 048
     Dates: start: 20110623
  38. DEXAMETHASONE [Concomitant]
     Dosage: UNK MG, UNK
     Route: 042
     Dates: start: 20110725, end: 20120103
  39. LEVAQUIN [Concomitant]
     Dosage: 500 MG, UNK
     Route: 042
     Dates: start: 20111017, end: 20111017
  40. CIPROFLOXACIN HCL [Concomitant]
     Dosage: 500 MG, UNK
     Route: 048
     Dates: start: 20111106, end: 20111202
  41. MULTI-VITAMINS [Concomitant]
     Dosage: UNK
     Route: 048

REACTIONS (2)
  - URINARY RETENTION [None]
  - FLANK PAIN [None]
